FAERS Safety Report 12253469 (Version 8)
Quarter: 2016Q3

REPORT INFORMATION
  Report Type: Spontaneous
  Country: US (occurrence: US)
  Receive Date: 20160411
  Receipt Date: 20160808
  Transmission Date: 20161109
  Serious: Yes (Hospitalization, Other)
  Sender: FDA-Public Use
  Company Number: US-PFIZER INC-2016200430

PATIENT
  Age: 74 Year
  Sex: Female
  Weight: 45 kg

DRUGS (25)
  1. OXYCONTIN [Concomitant]
     Active Substance: OXYCODONE HYDROCHLORIDE
     Indication: PAIN
     Dosage: 5 MG/325 MG EVERY 4 HOURS, AS NEEDED (HAVE 1/2)
     Dates: start: 20150630
  2. AVAPRO [Concomitant]
     Active Substance: IRBESARTAN
     Dosage: 300 MG, DAILY ^NONE^
     Route: 048
  3. SYNTHROID [Concomitant]
     Active Substance: LEVOTHYROXINE SODIUM
     Dosage: 75 UG, DAILY
     Route: 048
  4. MACROBID [Concomitant]
     Active Substance: NITROFURANTOIN\NITROFURANTOIN MONOHYDRATE
     Dosage: UNK
  5. PROTONIX [Suspect]
     Active Substance: PANTOPRAZOLE SODIUM
     Indication: ABDOMINAL DISCOMFORT
     Dosage: 40 MG, 1X/DAY
  6. ALLOPURINOL. [Concomitant]
     Active Substance: ALLOPURINOL
     Indication: RENAL DISORDER
     Dosage: 100 MG ONE EVERY MORNING BY MOUTH
     Route: 048
     Dates: start: 2015
  7. ATENOLOL. [Concomitant]
     Active Substance: ATENOLOL
     Indication: HEART RATE INCREASED
     Dosage: 50 MG A FORTH OF A TABLET BY MOUTH WHEN NEEDED : 1/4 TB WHEN OVER 65
     Route: 048
  8. TYLENOL [Concomitant]
     Active Substance: ACETAMINOPHEN
     Dosage: 0.5 DF, AS NEEDED
  9. DIAZEPAM. [Concomitant]
     Active Substance: DIAZEPAM
     Indication: PANIC ATTACK
     Dosage: 5 MG, AS NEEDED
  10. ATENOLOL. [Concomitant]
     Active Substance: ATENOLOL
     Dosage: UNK, (1/4 75 MG)
  11. GEMFIBROZIL. [Concomitant]
     Active Substance: GEMFIBROZIL
     Indication: BLOOD CHOLESTEROL ABNORMAL
     Dosage: 600 MG ONE MORNING IN THE MORNING AND ONE AT NIGHT, 30 MINUTES BEFORE SHE EATS (1 AM, 1 PM)
     Route: 048
  12. DIAZEPAM. [Concomitant]
     Active Substance: DIAZEPAM
     Indication: HYPERTENSION
     Dosage: 10 MG EVERY 4 HOURS AS NEEDED NOT EVERY DAY, SOMETIMES SHE CUTS THEM IN TWO, SOMETIMES SHE DOES NOT.
     Dates: start: 2015
  13. ACIDOPHILUS [Concomitant]
     Active Substance: LACTOBACILLUS ACIDOPHILUS
  14. CLOPIDOGREL [Concomitant]
     Active Substance: CLOPIDOGREL BISULFATE
     Dosage: UNK
  15. ADVIL [Concomitant]
     Active Substance: IBUPROFEN
     Dosage: UNK
  16. AVELOX [Concomitant]
     Active Substance: MOXIFLOXACIN HYDROCHLORIDE
     Dosage: UNK
  17. PLAVIX [Concomitant]
     Active Substance: CLOPIDOGREL BISULFATE
     Dosage: 75 MG ONE A DAY BY MOUTH AT NIGHT
     Route: 048
  18. SODIUM BICARBONATE. [Concomitant]
     Active Substance: SODIUM BICARBONATE
     Indication: HYPERCHLORHYDRIA
     Dosage: 650 MG TWO TABLETS BY MOUTH THREE TIMES A DAY
     Route: 048
  19. LEVOTHYROXINE. [Concomitant]
     Active Substance: LEVOTHYROXINE
     Indication: THYROID DISORDER
     Dosage: 100 MG, 1X/DAY
     Route: 048
  20. EMETROL [Concomitant]
     Active Substance: DEXTROSE\FRUCTOSE\PHOSPHORIC ACID
     Dosage: 600 MG, 2X/DAY
  21. ATENOLOL. [Concomitant]
     Active Substance: ATENOLOL
     Indication: HYPERTENSION
     Dosage: UNK UNK, AS NEEDED (1/4 WHEN NEEDED)
  22. SODIUM BICARBONATE. [Concomitant]
     Active Substance: SODIUM BICARBONATE
     Indication: RENAL DISORDER
     Dosage: 100 MG, 2X/DAY
  23. CLONIDINE HCL [Concomitant]
     Active Substance: CLONIDINE HYDROCHLORIDE
     Indication: BLOOD PRESSURE ABNORMAL
     Dosage: 0.2 MG 1 1/2 - 3 TIMES A DAY
     Route: 048
  24. PANTOPRAZOLE [Suspect]
     Active Substance: PANTOPRAZOLE SODIUM
     Indication: ABDOMINAL DISCOMFORT
     Dosage: 40 MG, 1X/DAY (1 PILL BY MOUTH PER DAY IN THE MORNING)
     Route: 048
  25. AMBIEN [Concomitant]
     Active Substance: ZOLPIDEM TARTRATE
     Dosage: 5 MG, UNK

REACTIONS (17)
  - Drug intolerance [Not Recovered/Not Resolved]
  - Asthenia [Unknown]
  - Stress [Unknown]
  - Blindness [Recovered/Resolved]
  - Fall [Unknown]
  - Cerebrovascular accident [Not Recovered/Not Resolved]
  - Somnolence [Not Recovered/Not Resolved]
  - Arthralgia [Unknown]
  - Abasia [Not Recovered/Not Resolved]
  - Dizziness [Unknown]
  - Head injury [Unknown]
  - Concussion [Recovered/Resolved]
  - Feeling abnormal [Unknown]
  - Laceration [Unknown]
  - Myocardial infarction [Recovered/Resolved]
  - Musculoskeletal pain [Unknown]
  - Drug dose omission [Unknown]

NARRATIVE: CASE EVENT DATE: 2011
